FAERS Safety Report 8283437-2 (Version None)
Quarter: 2012Q2

REPORT INFORMATION
  Report Type: 
  Country: None (occurrence: None)
  Receive Date: 20120413
  Receipt Date: 20120405
  Transmission Date: 20120825
  Serious: Yes (Other)
  Sender: FDA-Public Use
  Company Number: US-BAYER-2011-120176

PATIENT
  Age: 28 Year
  Sex: Female
  Weight: 74.83 kg

DRUGS (7)
  1. YAZ [Suspect]
     Indication: CONTRACEPTION
     Dosage: UNK
     Dates: start: 20060101, end: 20060101
  2. YASMIN [Suspect]
     Indication: ACNE
     Dosage: UNK
     Dates: start: 20040101, end: 20060101
  3. YASMIN [Suspect]
     Indication: CONTRACEPTION
  4. YAZ [Suspect]
     Indication: ACNE
  5. PREVIDENT [Concomitant]
     Dosage: UNK
  6. HYDROCODONE BITARTRATE [Concomitant]
     Dosage: UNK
  7. HYDROCODONE BITARTRATE [Concomitant]
     Dosage: 10-500MG
     Route: 048

REACTIONS (5)
  - RETINAL ARTERY OCCLUSION [None]
  - ANXIETY [None]
  - INJURY [None]
  - EMOTIONAL DISORDER [None]
  - PAIN [None]
